FAERS Safety Report 15249836 (Version 1)
Quarter: 2018Q3

REPORT INFORMATION
  Report Type: Spontaneous
  Country: US (occurrence: US)
  Receive Date: 20180807
  Receipt Date: 20180807
  Transmission Date: 20181010
  Serious: Yes (Hospitalization)
  Sender: FDA-Public Use
  Company Number: US-BAYER-2018-147292

PATIENT
  Age: 39 Year
  Sex: Female

DRUGS (1)
  1. ALKA?SELTZER PLUS SEVERE COLD AND FLU FORMULA [Suspect]
     Active Substance: ACETAMINOPHEN\CHLORPHENIRAMINE\DEXTROMETHORPHAN\PHENYLEPHRINE
     Dosage: 2 DF, UNK
     Route: 048

REACTIONS (3)
  - Dizziness [Unknown]
  - Dyspnoea [Unknown]
  - Rash [Unknown]
